FAERS Safety Report 22049209 (Version 3)
Quarter: 2023Q2

REPORT INFORMATION
  Report Type: Spontaneous
  Country: GB (occurrence: GB)
  Receive Date: 20230301
  Receipt Date: 20230417
  Transmission Date: 20230722
  Serious: Yes (Hospitalization, Other)
  Sender: FDA-Public Use
  Company Number: GB-MYLANLABS-2023M1021084

PATIENT
  Age: 34 Year
  Sex: Female

DRUGS (1)
  1. CLOZARIL [Suspect]
     Active Substance: CLOZAPINE
     Indication: Schizophrenia
     Dosage: UNK
     Route: 048
     Dates: start: 20210326

REACTIONS (12)
  - Hospitalisation [Recovered/Resolved]
  - Prolactin-producing pituitary tumour [Unknown]
  - C-reactive protein increased [Unknown]
  - Blood alkaline phosphatase increased [Unknown]
  - Alanine aminotransferase increased [Unknown]
  - Gamma-glutamyltransferase increased [Unknown]
  - Blood cholesterol increased [Unknown]
  - Total cholesterol/HDL ratio decreased [Unknown]
  - Non-high-density lipoprotein cholesterol increased [Unknown]
  - High density lipoprotein decreased [Unknown]
  - Red blood cell count increased [Not Recovered/Not Resolved]
  - Haematocrit increased [Unknown]

NARRATIVE: CASE EVENT DATE: 20230221
